FAERS Safety Report 19122927 (Version 1)
Quarter: 2021Q2

REPORT INFORMATION
  Report Type: Report from Study
  Country: ZA (occurrence: ZA)
  Receive Date: 20210412
  Receipt Date: 20210412
  Transmission Date: 20210717
  Serious: Yes (Other)
  Sender: FDA-Public Use
  Company Number: NVSC2021ZA076089

PATIENT
  Sex: Female

DRUGS (5)
  1. AMLOC [Concomitant]
     Indication: HYPERTENSION
     Dosage: UNK (HAD BEEN ON IT TOO LONG)
     Route: 065
  2. KRYXANA [Suspect]
     Active Substance: RIBOCICLIB
     Indication: BREAST CANCER
     Dosage: 600 MG, QD
     Route: 048
     Dates: start: 20210319
  3. OMEGA 3 + 6 [Concomitant]
     Active Substance: .ALPHA.-TOCOPHEROL ACETATE, D-\EVENING PRIMROSE OIL\FISH OIL
     Indication: PRODUCT USED FOR UNKNOWN INDICATION
     Dosage: UNK
     Route: 065
  4. ALTOSEC [Concomitant]
     Active Substance: OMEPRAZOLE
     Indication: HYPERTENSION
     Dosage: UNK, PRN
     Route: 065
  5. STILPANE [Concomitant]
     Indication: HYPERTENSION
     Dosage: UNK, PRN
     Route: 065

REACTIONS (1)
  - Tachycardia [Unknown]
